FAERS Safety Report 6232677-2 (Version None)
Quarter: 2009Q2

REPORT INFORMATION
  Report Type: 
  Country: None (occurrence: None)
  Receive Date: 20090612
  Receipt Date: 20090612
  Transmission Date: 20091009
  Serious: Yes (Hospitalization)
  Sender: FDA-Public Use
  Company Number: None

PATIENT
  Age: 62 Year
  Sex: Male
  Weight: 159 kg

DRUGS (3)
  1. VANCOMYCIN [Suspect]
     Indication: CELLULITIS
     Dosage: 2GM Q12H IV
     Route: 042
     Dates: start: 20090501, end: 20090504
  2. VANCOMYCIN [Suspect]
     Indication: SEPSIS
     Dosage: 2GM Q12H IV
     Route: 042
     Dates: start: 20090501, end: 20090504
  3. ZOSYN [Concomitant]

REACTIONS (6)
  - DIALYSIS [None]
  - PROCALCITONIN INCREASED [None]
  - PRODUCT QUALITY ISSUE [None]
  - RENAL DISORDER [None]
  - RENAL IMPAIRMENT [None]
  - SEPSIS [None]
